FAERS Safety Report 21650895 (Version 1)
Quarter: 2022Q4

REPORT INFORMATION
  Report Type: Spontaneous
  Country: US (occurrence: US)
  Receive Date: 20221128
  Receipt Date: 20221128
  Transmission Date: 20230113
  Serious: No
  Sender: FDA-Public Use
  Company Number: US-PFIZER INC-202201324859

PATIENT
  Age: 77 Year
  Sex: Male
  Weight: 77.11 kg

DRUGS (5)
  1. PAXLOVID [Suspect]
     Active Substance: NIRMATRELVIR\RITONAVIR
     Indication: COVID-19 treatment
     Dosage: UNK, 2X/DAY(TAKE TWICE A DAY; RENAL LOWER DOSE;DOSE/STRENGTH: UNKNOWN)
     Dates: start: 20221122
  2. METFORMIN [Suspect]
     Active Substance: METFORMIN HYDROCHLORIDE
     Indication: Diabetes mellitus
     Dosage: 1000 MG, 1X/DAY
  3. LISINOPRIL [Suspect]
     Active Substance: LISINOPRIL
     Indication: Hypertension
     Dosage: 40 MG, 1X/DAY
  4. VITAMIN D3 [Suspect]
     Active Substance: CHOLECALCIFEROL
     Dosage: 5000 IU, DAILY(5,000IU DAILY 125MCG)
  5. BAYER LOW DOSE [Suspect]
     Active Substance: ASPIRIN
     Indication: Anticoagulant therapy
     Dosage: 81 MG

REACTIONS (11)
  - Chills [Unknown]
  - Cough [Unknown]
  - Diarrhoea [Unknown]
  - Peripheral coldness [Unknown]
  - Dysgeusia [Not Recovered/Not Resolved]
  - Oropharyngeal pain [Not Recovered/Not Resolved]
  - Hyperhidrosis [Unknown]
  - Nausea [Unknown]
  - Productive cough [Unknown]
  - Headache [Unknown]
  - Dysphonia [Unknown]

NARRATIVE: CASE EVENT DATE: 20221122
